FAERS Safety Report 6564848-X (Version None)
Quarter: 2010Q1

REPORT INFORMATION
  Report Type: 
  Country: None (occurrence: None)
  Receive Date: 20100201
  Receipt Date: 20100120
  Transmission Date: 20100710
  Serious: Yes (Death)
  Sender: FDA-Public Use
  Company Number: JP-PFIZER INC-2010009403

PATIENT
  Age: 85 Year
  Sex: Male
  Weight: 72 kg

DRUGS (3)
  1. VORICONAZOLE [Suspect]
     Indication: RESPIRATORY MONILIASIS
     Dosage: 200 MG, 2X/DAY
     Route: 048
     Dates: start: 20090811, end: 20090821
  2. ALL OTHER THERAPEUTIC PRODUCTS [Concomitant]
     Route: 042
     Dates: start: 20090811, end: 20090821
  3. EXACIN [Concomitant]
     Dosage: UNK
     Route: 042
     Dates: start: 20090805, end: 20090821

REACTIONS (1)
  - DEATH [None]
